FAERS Safety Report 6732693-8 (Version None)
Quarter: 2010Q2

REPORT INFORMATION
  Report Type: 
  Country: None (occurrence: None)
  Receive Date: 20100519
  Receipt Date: 20100202
  Transmission Date: 20101027
  Serious: No
  Sender: FDA-Public Use
  Company Number: US-BRISTOL-MYERS SQUIBB COMPANY-14960009

PATIENT
  Age: 51 Year
  Sex: Male
  Weight: 82 kg

DRUGS (5)
  1. BARACLUDE [Suspect]
     Indication: HEPATITIS
     Dosage: DURATION OF THERAPY: ONE YEAR AGO
  2. VIREAD [Concomitant]
  3. NEXIUM [Concomitant]
  4. INDERAL [Concomitant]
  5. REGLAN [Concomitant]

REACTIONS (1)
  - STOMATITIS [None]
